FAERS Safety Report 11745626 (Version 1)
Quarter: 2015Q4

REPORT INFORMATION
  Report Type: Spontaneous
  Country: US (occurrence: None)
  Receive Date: 20151116
  Receipt Date: 20151116
  Transmission Date: 20160304
  Serious: Yes (Other)
  Sender: FDA-Public Use
  Company Number: None

PATIENT
  Age: 74 Year
  Sex: Female
  Weight: 68.04 kg

DRUGS (11)
  1. OTEZLA [Suspect]
     Active Substance: APREMILAST
     Indication: PSORIASIS
     Dosage: STARTER PACK, 10 MG
     Route: 048
     Dates: start: 20151105, end: 20151106
  2. IMPLANTED CARDIAC PACEMAKER [Concomitant]
  3. MULTIVITAMIN [Concomitant]
     Active Substance: VITAMINS
  4. LATANOPROST. [Concomitant]
     Active Substance: LATANOPROST
  5. BISOPROLOL FUMARATE. [Concomitant]
     Active Substance: BISOPROLOL FUMARATE
  6. DILTIAZEM [Concomitant]
     Active Substance: DILTIAZEM
  7. CALCIIUM LEVOFOLINATE [Concomitant]
     Active Substance: LEUCOVORIN CALCIUM
  8. FLECAINIDE [Concomitant]
     Active Substance: FLECAINIDE
  9. VITAMIN D3 [Concomitant]
     Active Substance: CHOLECALCIFEROL
  10. LETROZOLE. [Concomitant]
     Active Substance: LETROZOLE
  11. PRADAXA [Concomitant]
     Active Substance: DABIGATRAN ETEXILATE MESYLATE

REACTIONS (4)
  - Pulse pressure increased [None]
  - Headache [None]
  - Asthenia [None]
  - Photopsia [None]

NARRATIVE: CASE EVENT DATE: 20151106
